FAERS Safety Report 14196363 (Version 1)
Quarter: 2017Q4

REPORT INFORMATION
  Report Type: Spontaneous
  Country: FR (occurrence: FR)
  Receive Date: 20171116
  Receipt Date: 20171116
  Transmission Date: 20180321
  Serious: Yes (Other)
  Sender: FDA-Public Use
  Company Number: FR-MERCK KGAA-2034371

PATIENT
  Age: 77 Year
  Sex: Female

DRUGS (1)
  1. NOVOTHYROX [Suspect]
     Active Substance: LEVOTHYROXINE SODIUM
     Indication: BASEDOW^S DISEASE
     Route: 048
     Dates: start: 2017

REACTIONS (6)
  - Depression [Unknown]
  - Hot flush [Unknown]
  - Tachycardia [Unknown]
  - Myalgia [Unknown]
  - Arrhythmia [Unknown]
  - Migraine [Unknown]

NARRATIVE: CASE EVENT DATE: 20170630
